FAERS Safety Report 17010081 (Version 1)
Quarter: 2019Q4

REPORT INFORMATION
  Report Type: Spontaneous
  Country: US (occurrence: US)
  Receive Date: 20191108
  Receipt Date: 20191108
  Transmission Date: 20200122
  Serious: No
  Sender: FDA-Public Use
  Company Number: US-009507513-1910USA011682

PATIENT
  Age: 76 Year
  Sex: Male

DRUGS (5)
  1. TALIMOGENE LAHERPAREPVEC [Concomitant]
     Active Substance: TALIMOGENE LAHERPAREPVEC
  2. IPILIMUMAB [Concomitant]
     Active Substance: IPILIMUMAB
  3. KEYTRUDA [Suspect]
     Active Substance: PEMBROLIZUMAB
     Indication: NEUROENDOCRINE CARCINOMA OF THE SKIN
  4. CARBOPLATIN (+) ETOPOSIDE [Concomitant]
     Indication: MALIGNANT NEOPLASM PROGRESSION
  5. AVELUMAB [Concomitant]
     Active Substance: AVELUMAB

REACTIONS (2)
  - Drug effective for unapproved indication [Unknown]
  - Off label use [Unknown]
